FAERS Safety Report 7477829-9 (Version None)
Quarter: 2011Q2

REPORT INFORMATION
  Report Type: 
  Country: None (occurrence: None)
  Receive Date: 20110513
  Receipt Date: 20110506
  Transmission Date: 20111010
  Serious: Yes (Other)
  Sender: FDA-Public Use
  Company Number: AR-AMGEN-ARGSP2011019562

PATIENT
  Age: 49 Year
  Sex: Female
  Weight: 60 kg

DRUGS (5)
  1. METHOTREXATE [Concomitant]
     Dosage: UNK
     Route: 048
     Dates: start: 20050101
  2. DICLOFENAC SODIUM [Concomitant]
     Dosage: UNK
     Route: 048
     Dates: start: 20050101
  3. ENBREL [Suspect]
     Indication: RHEUMATOID ARTHRITIS
     Dosage: 50 MG, WEEKLY
     Route: 058
     Dates: start: 20090101, end: 20110201
  4. MEPREDNISONE [Concomitant]
     Dosage: UNK
     Route: 048
     Dates: start: 20050101
  5. INDOMETHACIN SODIUM [Concomitant]
     Dosage: UNK
     Route: 048
     Dates: start: 20050101

REACTIONS (4)
  - LIVER DISORDER [None]
  - IMMUNE SYSTEM DISORDER [None]
  - DRUG INEFFECTIVE [None]
  - HERPES ZOSTER [None]
